FAERS Safety Report 10010004 (Version 2)
Quarter: 2014Q1

REPORT INFORMATION
  Report Type: Spontaneous
  Country: US (occurrence: US)
  Receive Date: 20140312
  Receipt Date: 20140312
  Transmission Date: 20141002
  Serious: Yes (Other)
  Sender: FDA-Public Use
  Company Number: US-INCYTE CORPORATION-2013IN000574

PATIENT
  Sex: Male
  Weight: 76.64 kg

DRUGS (5)
  1. JAKAFI [Suspect]
     Indication: MYELOFIBROSIS
     Dosage: 5 MG, BID
     Dates: start: 20120209
  2. CALCIUM [Concomitant]
  3. VITAMIN D [Concomitant]
  4. FLOMAX [Concomitant]
  5. TESTOSTERONE [Concomitant]

REACTIONS (3)
  - Platelet count decreased [Recovering/Resolving]
  - Drug administration error [Unknown]
  - Disease progression [None]
